FAERS Safety Report 8225590-2 (Version None)
Quarter: 2012Q1

REPORT INFORMATION
  Report Type: 
  Country: None (occurrence: None)
  Receive Date: 20120321
  Receipt Date: 20120313
  Transmission Date: 20120608
  Serious: Yes (Other)
  Sender: FDA-Public Use
  Company Number: PHHY2012JP022224

PATIENT
  Age: 36 Year
  Sex: Male

DRUGS (5)
  1. SULPIRIDE [Suspect]
     Indication: INSOMNIA
  2. PAROXETINE HCL [Suspect]
     Indication: INSOMNIA
  3. DIAZEPAM [Suspect]
     Indication: INSOMNIA
  4. ETIZOLAM [Suspect]
     Indication: INSOMNIA
  5. ALPRAZOLAM [Suspect]
     Indication: INSOMNIA

REACTIONS (1)
  - BLEPHAROSPASM [None]
